FAERS Safety Report 9639337 (Version 1)
Quarter: 2013Q4

REPORT INFORMATION
  Report Type: Spontaneous
  Country: DE (occurrence: None)
  Receive Date: 20131021
  Receipt Date: 20131021
  Transmission Date: 20140711
  Serious: Yes (Death)
  Sender: FDA-Public Use
  Company Number: AUR-APL-2013-08537

PATIENT
  Age: 36 Year
  Sex: Male
  Weight: 130 kg

DRUGS (1)
  1. OLANZAPINE [Suspect]
     Indication: SCHIZOPHRENIA
     Dosage: 20 MG  (10 MG, 2 IN 1 D), UNKNOWN
     Dates: start: 200703

REACTIONS (1)
  - Death [None]
